FAERS Safety Report 6252421-2 (Version None)
Quarter: 2009Q3

REPORT INFORMATION
  Report Type: 
  Country: None (occurrence: None)
  Receive Date: 20090701
  Receipt Date: 20090603
  Transmission Date: 20100115
  Serious: Yes (Other)
  Sender: FDA-Public Use
  Company Number: GB-SP-2009-02308

PATIENT
  Age: 64 Year
  Sex: Female

DRUGS (1)
  1. IMMUCYST [Suspect]
     Indication: BLADDER CANCER
     Route: 043
     Dates: start: 20090130, end: 20090508

REACTIONS (5)
  - ABDOMINAL PAIN [None]
  - CONJUNCTIVITIS [None]
  - CYSTITIS [None]
  - EYE PAIN [None]
  - FOREIGN BODY SENSATION IN EYES [None]
